FAERS Safety Report 8368950-1 (Version None)
Quarter: 2012Q2

REPORT INFORMATION
  Report Type: 
  Country: None (occurrence: None)
  Receive Date: 20120516
  Receipt Date: 20120516
  Transmission Date: 20120825
  Serious: Yes (Hospitalization)
  Sender: FDA-Public Use
  Company Number: None

PATIENT
  Age: 39 Year
  Sex: Male
  Weight: 154.1 kg

DRUGS (2)
  1. SERTRALINE HYDROCHLORIDE [Suspect]
     Indication: DEPRESSION
     Dosage: 50 NG EVERY DAY PO
     Route: 048
     Dates: start: 20120111, end: 20120206
  2. TERBINAFINE HCL [Suspect]
     Indication: FUNGAL INFECTION
     Dosage: 250 MG EVERY DAY PO
     Route: 048
     Dates: start: 20120111, end: 20120206

REACTIONS (4)
  - PRURITUS [None]
  - PHARYNGEAL OEDEMA [None]
  - URTICARIA [None]
  - DYSPHAGIA [None]
